FAERS Safety Report 24640546 (Version 2)
Quarter: 2024Q4

REPORT INFORMATION
  Report Type: Other
  Country: ES (occurrence: ES)
  Receive Date: 20241120
  Receipt Date: 20241217
  Transmission Date: 20250115
  Serious: Yes (Life-Threatening)
  Sender: ZYDUS PHARM
  Company Number: None

PATIENT

DRUGS (3)
  1. OMEPRAZOLE [Suspect]
     Active Substance: OMEPRAZOLE
     Indication: Product used for unknown indication
     Dosage: 20 MILLIGRAM
     Route: 048
     Dates: start: 20241107
  2. DEXKETOPROFENO PENSA [Concomitant]
     Indication: Malaise
     Dosage: 25 MILLIGRAM
     Route: 048
     Dates: start: 20231023
  3. FLATORIL [CLEBOPRIDE MALATE;SIMETICONE] [Concomitant]
     Indication: Flatulence
     Dosage: 0.5 MILLIGRAM
     Route: 048
     Dates: start: 20241030

REACTIONS (3)
  - Dyspnoea [Recovering/Resolving]
  - Tongue oedema [Recovering/Resolving]
  - Urticaria [Recovering/Resolving]

NARRATIVE: CASE EVENT DATE: 20241107
